FAERS Safety Report 10443995 (Version 1)
Quarter: 2014Q3

REPORT INFORMATION
  Report Type: Spontaneous
  Country: US (occurrence: US)
  Receive Date: 20140910
  Receipt Date: 20140910
  Transmission Date: 20150326
  Serious: No
  Sender: FDA-Public Use
  Company Number: US-TARO-2014TAR00108

PATIENT
  Age: 81 Year
  Sex: Female

DRUGS (11)
  1. PENTASA [Concomitant]
     Active Substance: MESALAMINE
     Dosage: 500 MG, UNK
  2. WARFARIN SODIUM TABLETS USP 5MG [Suspect]
     Active Substance: WARFARIN SODIUM
     Indication: ANTICOAGULANT THERAPY
     Dosage: 5 MG, 1X/DAY
     Route: 048
     Dates: end: 201406
  3. WARFARIN SODIUM TABLETS USP 5MG [Suspect]
     Active Substance: WARFARIN SODIUM
     Dosage: 6 MG, 1X/DAY
     Dates: start: 201406
  4. SYNTHROID [Concomitant]
     Active Substance: LEVOTHYROXINE SODIUM
     Dosage: 50 ?G, UNK
  5. BUDESONIDE. [Concomitant]
     Active Substance: BUDESONIDE
     Dosage: 3 MG, UNK
  6. HUMIRA [Concomitant]
     Active Substance: ADALIMUMAB
     Dosage: 40 MG, UNK
  7. ACTONEL [Concomitant]
     Active Substance: RISEDRONATE SODIUM
     Dosage: 150 MG, UNK
  8. LEXAPRO [Concomitant]
     Active Substance: ESCITALOPRAM OXALATE
     Dosage: 20 MG, UNK
  9. CHOLESTYRAMINE. [Concomitant]
     Active Substance: CHOLESTYRAMINE
     Dosage: UNK, 2X/DAY
  10. SINGULAIR [Concomitant]
     Active Substance: MONTELUKAST SODIUM
     Dosage: 10 MG, UNK
  11. SOTALOL. [Concomitant]
     Active Substance: SOTALOL
     Dosage: 80 MG, UNK

REACTIONS (2)
  - Product quality issue [Unknown]
  - International normalised ratio decreased [Recovered/Resolved]

NARRATIVE: CASE EVENT DATE: 201406
